FAERS Safety Report 6648134-5 (Version None)
Quarter: 2010Q1

REPORT INFORMATION
  Report Type: 
  Country: None (occurrence: None)
  Receive Date: 20100324
  Receipt Date: 20100315
  Transmission Date: 20100710
  Serious: Yes (Hospitalization, Other)
  Sender: FDA-Public Use
  Company Number: DE-ABBOTT-10P-062-0632380-00

PATIENT
  Age: 25 Year
  Sex: Male
  Weight: 98 kg

DRUGS (1)
  1. AKINETON [Suspect]
     Indication: DRUG USE FOR UNKNOWN INDICATION
     Dosage: PROLONGED-RELEASE TABLET
     Route: 048
     Dates: start: 20091110, end: 20100128

REACTIONS (1)
  - AGRANULOCYTOSIS [None]
